FAERS Safety Report 10249955 (Version 5)
Quarter: 2014Q3

REPORT INFORMATION
  Report Type: Spontaneous
  Country: US (occurrence: US)
  Receive Date: 20140620
  Receipt Date: 20140731
  Transmission Date: 20150326
  Serious: No
  Sender: FDA-Public Use
  Company Number: US-ROXANE LABORATORIES, INC.-2014-RO-00957RO

PATIENT
  Age: 84 Year
  Sex: Male
  Weight: 81 kg

DRUGS (6)
  1. CARVEDILOL. [Concomitant]
     Active Substance: CARVEDILOL
     Indication: HYPERTENSION
     Dosage: 25 MG
     Route: 065
  2. ASPIRIN. [Concomitant]
     Active Substance: ASPIRIN
     Dosage: 81 MG
     Route: 065
  3. AMLODIPINE [Suspect]
     Active Substance: AMLODIPINE BESYLATE
     Indication: HYPERTENSION
     Dosage: 10 MG
     Route: 048
  4. E-MYCIN [Concomitant]
     Active Substance: ERYTHROMYCIN
     Dosage: 333 MG
     Route: 065
  5. LISINOPRIL. [Concomitant]
     Active Substance: LISINOPRIL
     Indication: HYPERTENSION
     Dosage: 40 MG
     Route: 065
  6. NIACIN. [Concomitant]
     Active Substance: NIACIN
     Dosage: 500 MG
     Route: 065

REACTIONS (4)
  - Oedema peripheral [Recovered/Resolved]
  - Blood pressure systolic increased [Recovered/Resolved]
  - Product quality issue [Not Recovered/Not Resolved]
  - Blood pressure diastolic increased [Recovered/Resolved]

NARRATIVE: CASE EVENT DATE: 20140518
